FAERS Safety Report 4718036-X (Version None)
Quarter: 2005Q3

REPORT INFORMATION
  Report Type: 
  Country: None (occurrence: None)
  Receive Date: 20050718
  Receipt Date: 20050401
  Transmission Date: 20060218
  Serious: No
  Sender: FDA-Public Use
  Company Number: 2005000660

PATIENT
  Age: 67 Year
  Sex: Female
  Weight: 72.5755 kg

DRUGS (5)
  1. TARCEVA [Suspect]
     Indication: NON-SMALL CELL LUNG CANCER
     Dosage: 150 MG (QD), ORAL
     Route: 048
     Dates: start: 20050214
  2. PEPCID AC [Concomitant]
  3. CALTRATE + D (LEKOVIT CA) [Concomitant]
  4. ATIVAN [Concomitant]
  5. IRON (IRON) [Concomitant]

REACTIONS (4)
  - COUGH [None]
  - PRURITUS [None]
  - RASH [None]
  - SKIN EXFOLIATION [None]
